FAERS Safety Report 25191882 (Version 1)
Quarter: 2025Q2

REPORT INFORMATION
  Report Type: Spontaneous
  Country: US (occurrence: US)
  Receive Date: 20250414
  Receipt Date: 20250414
  Transmission Date: 20250716
  Serious: No
  Sender: AMGEN
  Company Number: US-AMGEN-USASP2025071224

PATIENT
  Sex: Female

DRUGS (3)
  1. AIMOVIG [Suspect]
     Active Substance: ERENUMAB-AOOE
     Indication: Migraine
     Dosage: 140 MILLIGRAM, QMO
     Route: 058
     Dates: start: 2022
  2. AIMOVIG [Suspect]
     Active Substance: ERENUMAB-AOOE
     Dosage: 140 MILLIGRAM, QMO
     Route: 058
     Dates: start: 2022
  3. BOTOX [Concomitant]
     Active Substance: ONABOTULINUMTOXINA
     Indication: Migraine
     Route: 058

REACTIONS (5)
  - Hypersensitivity [Unknown]
  - Injection site swelling [Unknown]
  - Injection site haemorrhage [Unknown]
  - Scar [Unknown]
  - Wrong technique in product usage process [Unknown]

NARRATIVE: CASE EVENT DATE: 20250409
